FAERS Safety Report 19424024 (Version 1)
Quarter: 2021Q2

REPORT INFORMATION
  Report Type: Report from Study
  Country: US (occurrence: US)
  Receive Date: 20210616
  Receipt Date: 20210616
  Transmission Date: 20210717
  Serious: Yes (Hospitalization)
  Sender: FDA-Public Use
  Company Number: US-PFIZER INC-2021665042

PATIENT
  Age: 13 Year
  Sex: Male
  Weight: 25 kg

DRUGS (55)
  1. SIROLIMUS. [Suspect]
     Active Substance: SIROLIMUS
     Indication: IMMUNOSUPPRESSION
     Dosage: 0.92 MG, 3X/DAY
     Route: 050
     Dates: start: 20210309, end: 20210309
  2. SIROLIMUS. [Suspect]
     Active Substance: SIROLIMUS
     Dosage: 0.2 MG, 2X/DAY
     Route: 050
     Dates: start: 20210310, end: 20210312
  3. SIROLIMUS. [Suspect]
     Active Substance: SIROLIMUS
     Dosage: 0.15 MG, 2X/DAY
     Route: 050
     Dates: start: 20210320, end: 20210419
  4. POTASSIUM CHLORIDE. [Concomitant]
     Active Substance: POTASSIUM CHLORIDE
     Dosage: UNK
     Dates: start: 2012
  5. SIROLIMUS. [Suspect]
     Active Substance: SIROLIMUS
     Dosage: 0.12 MG, 2X/DAY
     Route: 050
     Dates: start: 20210421, end: 20210426
  6. SIROLIMUS. [Suspect]
     Active Substance: SIROLIMUS
     Dosage: 0.1 MG, SINGLE
     Route: 050
     Dates: start: 20210427, end: 20210427
  7. SIROLIMUS. [Suspect]
     Active Substance: SIROLIMUS
     Dosage: 0.1 MG, 2X/DAY
     Route: 050
     Dates: start: 20210428
  8. TACROLIMUS. [Suspect]
     Active Substance: TACROLIMUS
     Dosage: 1 MG, SINGLE
     Route: 050
     Dates: start: 20210315, end: 20210315
  9. TACROLIMUS. [Suspect]
     Active Substance: TACROLIMUS
     Dosage: 0.8 MG, SINGLE
     Route: 050
     Dates: start: 20210325, end: 20210325
  10. TACROLIMUS. [Suspect]
     Active Substance: TACROLIMUS
     Dosage: 1 MG, SINGLE
     Route: 050
     Dates: start: 20210325, end: 20210325
  11. TACROLIMUS. [Suspect]
     Active Substance: TACROLIMUS
     Dosage: 0.7 MG, SINGLE
     Route: 050
     Dates: start: 20210408, end: 20210408
  12. DEXAMETHASONE. [Suspect]
     Active Substance: DEXAMETHASONE
     Dosage: 18 MG, SINGLE
     Route: 042
     Dates: start: 20210512, end: 20210512
  13. GABAPENTIN. [Concomitant]
     Active Substance: GABAPENTIN
     Dosage: UNK
     Dates: start: 2014
  14. ACETAMINOPHEN. [Concomitant]
     Active Substance: ACETAMINOPHEN
     Dosage: UNK
     Dates: start: 2011
  15. MENAQUINONE?7 [Concomitant]
     Dosage: UNK
     Dates: start: 2012
  16. IDURSULFASE [Concomitant]
     Active Substance: IDURSULFASE
     Dosage: UNK
     Dates: start: 2011
  17. TACROLIMUS. [Suspect]
     Active Substance: TACROLIMUS
     Dosage: 0.8 MG, 2X/DAY
     Route: 050
     Dates: start: 20210326, end: 20210404
  18. TACROLIMUS. [Suspect]
     Active Substance: TACROLIMUS
     Dosage: 0.55 MG, SINGLE
     Route: 050
     Dates: start: 20210420, end: 20210420
  19. TACROLIMUS. [Suspect]
     Active Substance: TACROLIMUS
     Dosage: 0.55 MG, 2X/DAY
     Route: 050
     Dates: start: 20210421
  20. PREDNISOLONE. [Suspect]
     Active Substance: PREDNISOLONE
     Dosage: 13.5 MG, 1X/DAY
     Route: 050
     Dates: start: 20210518, end: 20210521
  21. RIBOFLAVIN [Concomitant]
     Active Substance: RIBOFLAVIN
     Dosage: UNK
     Dates: start: 2014
  22. COLECALCIFEROL [Concomitant]
     Active Substance: CHOLECALCIFEROL
     Dosage: UNK
     Dates: start: 2012
  23. SIROLIMUS. [Suspect]
     Active Substance: SIROLIMUS
     Dosage: 0.1 MG, 2X/DAY
     Route: 050
     Dates: start: 20210313, end: 20210319
  24. SIROLIMUS. [Suspect]
     Active Substance: SIROLIMUS
     Dosage: 0.12 MG, SINGLE
     Route: 050
     Dates: start: 20210427, end: 20210427
  25. DEXAMETHASONE. [Suspect]
     Active Substance: DEXAMETHASONE
     Indication: ORAL CANDIDIASIS
     Dosage: 1 SWAB APPLICATION, QID
     Dates: start: 20210420
  26. DEXAMETHASONE. [Suspect]
     Active Substance: DEXAMETHASONE
     Dosage: 2 MG, 1X/DAY
     Route: 050
     Dates: start: 20210522
  27. IMMUNOGLOBULIN HUMAN NORMAL [Concomitant]
     Active Substance: HUMAN IMMUNOGLOBULIN G
     Dosage: UNK
     Dates: start: 201208
  28. PREDNISOLONE. [Suspect]
     Active Substance: PREDNISOLONE
     Dosage: 8.7 MG, 1X/DAY
     Route: 050
     Dates: start: 20210326, end: 20210408
  29. DEXAMETHASONE. [Suspect]
     Active Substance: DEXAMETHASONE
     Indication: ANAESTHESIA
     Dosage: 8 MG, SINGLE
     Route: 042
     Dates: start: 20210428, end: 20210428
  30. DIPHENHYDRAMINE. [Concomitant]
     Active Substance: DIPHENHYDRAMINE
     Dosage: UNK
     Dates: start: 20090214
  31. FAMOTIDINE. [Concomitant]
     Active Substance: FAMOTIDINE
     Dosage: UNK
     Dates: start: 202009
  32. TACROLIMUS. [Suspect]
     Active Substance: TACROLIMUS
     Dosage: 1.25 MG, SINGLE
     Route: 050
     Dates: start: 20210315, end: 20210315
  33. TACROLIMUS. [Suspect]
     Active Substance: TACROLIMUS
     Dosage: 0.6 MG, SINGLE
     Route: 050
     Dates: start: 20210408, end: 20210408
  34. TRIMETHOPRIM SULFAMETHOXAZOLE [Suspect]
     Active Substance: SULFAMETHOXAZOLE\TRIMETHOPRIM
     Dosage: 124 MG, 3X/WEEKLY
     Route: 050
     Dates: start: 20210326
  35. PREDNISOLONE. [Suspect]
     Active Substance: PREDNISOLONE
     Dosage: 4.8 MG, 1X/DAY
     Route: 050
     Dates: start: 20210409, end: 20210517
  36. CETIRIZINE [Concomitant]
     Active Substance: CETIRIZINE HYDROCHLORIDE
     Dosage: UNK
     Dates: start: 2017
  37. ONDANSETRON HYDROCHLORIDE. [Concomitant]
     Active Substance: ONDANSETRON HYDROCHLORIDE
     Dosage: UNK
     Dates: start: 2012
  38. BUDESONIDE. [Concomitant]
     Active Substance: BUDESONIDE
     Dosage: UNK
     Dates: start: 2017
  39. LACTOBACILLUS ACIDOPHILUS [Concomitant]
     Active Substance: LACTOBACILLUS ACIDOPHILUS
     Dosage: UNK
     Dates: start: 20091119
  40. EMLA [Concomitant]
     Active Substance: LIDOCAINE\PRILOCAINE
     Dosage: UNK
     Dates: start: 200902
  41. SIROLIMUS. [Suspect]
     Active Substance: SIROLIMUS
     Dosage: 0.15 MG, SINGLE
     Route: 050
     Dates: start: 20210420, end: 20210420
  42. TACROLIMUS. [Suspect]
     Active Substance: TACROLIMUS
     Dosage: 0.7 MG, SINGLE
     Route: 050
     Dates: start: 20210420, end: 20210420
  43. TRIMETHOPRIM SULFAMETHOXAZOLE [Suspect]
     Active Substance: SULFAMETHOXAZOLE\TRIMETHOPRIM
     Indication: ANTIFUNGAL PROPHYLAXIS
     Dosage: 123.2 MG, 3X/WEEKLY
     Route: 050
     Dates: start: 20210309, end: 20210325
  44. PREDNISOLONE. [Suspect]
     Active Substance: PREDNISOLONE
     Indication: IMMUNOSUPPRESSION
     Dosage: 12.3 MG, 1X/DAY
     Route: 050
     Dates: start: 20210312, end: 20210325
  45. OMEPRAZOLE. [Concomitant]
     Active Substance: OMEPRAZOLE
     Dosage: UNK
     Dates: start: 2018
  46. ALBUTEROL HFA [Concomitant]
     Active Substance: ALBUTEROL SULFATE
     Dosage: UNK
     Dates: start: 2017
  47. HEPARIN [Concomitant]
     Active Substance: HEPARIN SODIUM
     Dosage: UNK
     Dates: start: 2011
  48. SIROLIMUS. [Suspect]
     Active Substance: SIROLIMUS
     Dosage: 0.12 MG, SINGLE
     Route: 050
     Dates: start: 20210420, end: 20210420
  49. TACROLIMUS. [Suspect]
     Active Substance: TACROLIMUS
     Indication: IMMUNOSUPPRESSION
     Dosage: 1.25 MG, 2X/DAY
     Route: 050
     Dates: start: 20210312, end: 20210314
  50. TACROLIMUS. [Suspect]
     Active Substance: TACROLIMUS
     Dosage: 1 MG, 2X/DAY
     Route: 050
     Dates: start: 20210316, end: 20210324
  51. TACROLIMUS. [Suspect]
     Active Substance: TACROLIMUS
     Dosage: 0.6 MG, 2X/DAY
     Route: 050
     Dates: start: 20210405, end: 20210407
  52. TACROLIMUS. [Suspect]
     Active Substance: TACROLIMUS
     Dosage: 0.7 MG, 2X/DAY
     Route: 050
     Dates: start: 20210409, end: 20210419
  53. IBUPROFEN. [Concomitant]
     Active Substance: IBUPROFEN
     Dosage: UNK
     Dates: start: 201208
  54. UBIDECARENONE. [Concomitant]
     Active Substance: UBIDECARENONE
     Dosage: UNK
     Dates: start: 2014
  55. MONTELUKAST SODIUM. [Concomitant]
     Active Substance: MONTELUKAST SODIUM
     Dosage: UNK
     Dates: start: 2017

REACTIONS (9)
  - Oral candidiasis [Recovered/Resolved]
  - Dysphagia [Not Recovered/Not Resolved]
  - Myoclonus [Recovered/Resolved]
  - Abdominal pain [Recovered/Resolved]
  - Periorbital oedema [Recovered/Resolved]
  - Off label use [Unknown]
  - Stomatitis [Recovered/Resolved]
  - Somnolence [Recovered/Resolved]
  - VIIth nerve injury [Recovered/Resolved]

NARRATIVE: CASE EVENT DATE: 20210309
